FAERS Safety Report 8414258-5 (Version None)
Quarter: 2012Q2

REPORT INFORMATION
  Report Type: 
  Country: None (occurrence: None)
  Receive Date: 20120605
  Receipt Date: 20120529
  Transmission Date: 20120825
  Serious: Yes (Hospitalization)
  Sender: FDA-Public Use
  Company Number: AU-JNJFOC-20120516290

PATIENT
  Sex: Female
  Weight: 65 kg

DRUGS (15)
  1. GOLIMUMAB [Suspect]
     Route: 042
     Dates: start: 20120518
  2. PLACEBO [Suspect]
     Route: 042
     Dates: start: 20120518
  3. COVERSYL PLUS [Concomitant]
     Indication: HYPERTENSION
     Route: 048
     Dates: start: 20101125
  4. OXYCONTIN [Concomitant]
     Indication: PAIN
     Route: 048
     Dates: start: 20110806
  5. PLACEBO [Suspect]
     Route: 042
     Dates: start: 20120316
  6. GOLIMUMAB [Suspect]
     Indication: RHEUMATOID ARTHRITIS
     Route: 042
     Dates: start: 20101005
  7. GOLIMUMAB [Suspect]
     Route: 042
     Dates: start: 20120316
  8. PLACEBO [Suspect]
     Indication: RHEUMATOID ARTHRITIS
     Route: 042
     Dates: start: 20101005
  9. FOSAMAX [Concomitant]
     Indication: OSTEOPOROSIS
     Route: 048
     Dates: start: 20050101
  10. TRAMADOL HCL [Concomitant]
     Indication: PAIN
     Route: 048
     Dates: start: 20100415
  11. CALCIUM [Concomitant]
     Indication: OSTEOPOROSIS
     Route: 048
     Dates: start: 20000101
  12. MICARDIS [Concomitant]
     Indication: HYPERTENSION
     Route: 048
     Dates: start: 20070101
  13. VITAMIN D [Concomitant]
     Indication: OSTEOPOROSIS
     Route: 048
     Dates: start: 20000101
  14. ENDEP [Concomitant]
     Indication: INSOMNIA
     Route: 048
     Dates: start: 20100415
  15. FOLIC ACID [Concomitant]
     Route: 048
     Dates: start: 20080715

REACTIONS (2)
  - COLONOSCOPY [None]
  - DIVERTICULUM [None]
